FAERS Safety Report 5284251-2 (Version None)
Quarter: 2007Q2

REPORT INFORMATION
  Report Type: 
  Country: None (occurrence: None)
  Receive Date: 20070403
  Receipt Date: 20070402
  Transmission Date: 20071010
  Serious: Yes (Other)
  Sender: FDA-Public Use
  Company Number: US-BAYER-200710186BCC

PATIENT
  Age: 97 Year
  Sex: Female
  Weight: 45 kg

DRUGS (3)
  1. PHILLIPS LIQUID GELS [Suspect]
     Indication: CONSTIPATION
     Dosage: TOTAL DAILY DOSE: 300 MG  UNIT DOSE: 100 MG
     Route: 048
     Dates: start: 20070116
  2. AUGMENTIN '125' [Concomitant]
  3. ATENOLOL [Concomitant]

REACTIONS (2)
  - GAIT DISTURBANCE [None]
  - MOVEMENT DISORDER [None]
